FAERS Safety Report 14064504 (Version 1)
Quarter: 2017Q4

REPORT INFORMATION
  Report Type: Spontaneous
  Country: US (occurrence: US)
  Receive Date: 20171009
  Receipt Date: 20171009
  Transmission Date: 20180321
  Serious: Yes (Life-Threatening, Hospitalization)
  Sender: FDA-Public Use
  Company Number: US-MYLANLABS-2017M1062654

PATIENT
  Age: 27 Year
  Sex: Female

DRUGS (11)
  1. DEXMEDETOMIDINE. [Suspect]
     Active Substance: DEXMEDETOMIDINE
     Dosage: LOW-DOSE UP TO 0.5 MICROG/KG/H
     Route: 041
  2. MIDAZOLAM [Suspect]
     Active Substance: MIDAZOLAM HYDROCHLORIDE
     Indication: SEDATIVE THERAPY
     Dosage: TITRATED TO 10 MG/H, HIGH DOSE
     Route: 065
  3. PROPOFOL. [Suspect]
     Active Substance: PROPOFOL
     Indication: SEDATIVE THERAPY
     Dosage: 40 MICROG/KG/MIN
     Route: 041
  4. MIDAZOLAM [Suspect]
     Active Substance: MIDAZOLAM HYDROCHLORIDE
     Dosage: 3 MG/H,
     Route: 065
  5. DEXMEDETOMIDINE. [Suspect]
     Active Substance: DEXMEDETOMIDINE
     Indication: SEDATIVE THERAPY
     Dosage: 1.2 MICROG/KG/H
     Route: 041
  6. FENTANYL. [Suspect]
     Active Substance: FENTANYL
     Dosage: TITRATED TO 200 MICROG/H
     Route: 042
  7. PROPOFOL. [Suspect]
     Active Substance: PROPOFOL
     Dosage: 80 MICROG/KG/MIN
     Route: 041
  8. FENTANYL. [Suspect]
     Active Substance: FENTANYL
     Indication: SEDATIVE THERAPY
     Dosage: AS-NEEDED DOSES
     Route: 042
  9. PROPOFOL. [Suspect]
     Active Substance: PROPOFOL
     Dosage: 30 MICROG/KG/MIN
     Route: 041
  10. LEVETIRACETAM. [Concomitant]
     Active Substance: LEVETIRACETAM
     Indication: CONVULSION PROPHYLAXIS
     Dosage: LOADING DOSE 1000 MG
     Route: 065
  11. LEVETIRACETAM. [Concomitant]
     Active Substance: LEVETIRACETAM
     Dosage: 500 MG EVERY 12 HOURS
     Route: 065

REACTIONS (4)
  - Respiratory depression [Recovered/Resolved]
  - Agitation [Recovered/Resolved]
  - Hypotension [Recovered/Resolved]
  - Delirium [Recovered/Resolved]
